FAERS Safety Report 5336578-3 (Version None)
Quarter: 2007Q2

REPORT INFORMATION
  Report Type: 
  Country: None (occurrence: None)
  Receive Date: 20070529
  Receipt Date: 20070517
  Transmission Date: 20071010
  Serious: Yes (Other)
  Sender: FDA-Public Use
  Company Number: GB-AMGEN-US226218

PATIENT
  Sex: Female
  Weight: 59 kg

DRUGS (4)
  1. ENBREL [Suspect]
     Indication: RHEUMATOID ARTHRITIS
     Route: 058
     Dates: start: 20040317, end: 20060315
  2. ENBREL [Suspect]
     Route: 058
     Dates: start: 20060715
  3. DICLOFENAC [Concomitant]
     Dosage: UNKNOWN
  4. ETORICOXIB [Concomitant]
     Dosage: UNKNOWN (NOT TAKEN REGULARLY)

REACTIONS (2)
  - ABORTION SPONTANEOUS [None]
  - DRUG EXPOSURE DURING PREGNANCY [None]
